FAERS Safety Report 8516613-1 (Version None)
Quarter: 2012Q3

REPORT INFORMATION
  Report Type: 
  Country: None (occurrence: None)
  Receive Date: 20120718
  Receipt Date: 20120627
  Transmission Date: 20120928
  Serious: No
  Sender: FDA-Public Use
  Company Number: US-JNJFOC-20120614122

PATIENT

DRUGS (1)
  1. REMICADE [Suspect]
     Indication: RHEUMATOID ARTHRITIS
     Route: 042

REACTIONS (5)
  - PAIN [None]
  - ADVERSE EVENT [None]
  - FUNGAL INFECTION [None]
  - OROPHARYNGEAL PAIN [None]
  - FATIGUE [None]
